FAERS Safety Report 9291152 (Version 1)
Quarter: 2013Q2

REPORT INFORMATION
  Report Type: Report from Study
  Country: US (occurrence: US)
  Receive Date: 20130515
  Receipt Date: 20130515
  Transmission Date: 20140414
  Serious: Yes (Hospitalization, Other)
  Sender: FDA-Public Use
  Company Number: US-ABBOTT-13P-163-1087549-00

PATIENT
  Age: 22 Year
  Sex: Male

DRUGS (4)
  1. HUMIRA [Suspect]
     Indication: COLITIS ULCERATIVE
     Route: 058
     Dates: start: 20121215
  2. HUMIRA [Suspect]
     Route: 058
     Dates: start: 201303
  3. HUMIRA [Suspect]
     Route: 058
     Dates: start: 20130404
  4. IMURAN [Concomitant]
     Indication: LIVER DISORDER

REACTIONS (7)
  - Fistula [Unknown]
  - Rash pustular [Unknown]
  - Crohn^s disease [Unknown]
  - Furuncle [Recovered/Resolved]
  - Drug intolerance [Unknown]
  - Asthenia [Unknown]
  - Mobility decreased [Unknown]
